FAERS Safety Report 8177202-4 (Version None)
Quarter: 2012Q1

REPORT INFORMATION
  Report Type: 
  Country: None (occurrence: None)
  Receive Date: 20120301
  Receipt Date: 20120215
  Transmission Date: 20120608
  Serious: No
  Sender: FDA-Public Use
  Company Number: JP-CTI_01440_2012

PATIENT
  Sex: Female

DRUGS (3)
  1. SALICYLAMIDE/ACET/ANHYDROUS CAFF/PROMETHAZINE METHYLENEDISALICYLATE [Concomitant]
     Indication: NASOPHARYNGITIS
     Route: 048
     Dates: start: 20120117, end: 20120119
  2. MEIACT MS - CEFDITOREN PIVOXIL [Suspect]
     Indication: NASOPHARYNGITIS
     Dosage: DAILY DOSE 300 MG
     Route: 048
     Dates: start: 20120117, end: 20120119
  3. BENPROPERINE PHOSPHATE [Concomitant]
     Indication: NASOPHARYNGITIS
     Route: 048
     Dates: start: 20120117, end: 20120119

REACTIONS (1)
  - GAIT DISTURBANCE [None]
